FAERS Safety Report 5957515-4 (Version None)
Quarter: 2008Q4

REPORT INFORMATION
  Report Type: 
  Country: None (occurrence: None)
  Receive Date: 20081112
  Receipt Date: 20081102
  Transmission Date: 20090506
  Serious: Yes (Other)
  Sender: FDA-Public Use
  Company Number: CHPA2008US19041

PATIENT
  Age: 49 Year
  Sex: Female

DRUGS (1)
  1. MAALOX ANTACID/ANTIGAS MAX QDTABLS ASST (NCH) (CALCIUM CARBONATE, SIME [Suspect]
     Indication: ABDOMINAL DISCOMFORT
     Dosage: 1 DF, ONCE/SINGLE, ORAL
     Route: 048
     Dates: start: 20081102, end: 20081102

REACTIONS (1)
  - BLOOD GLUCOSE INCREASED [None]
